FAERS Safety Report 4459738-2 (Version None)
Quarter: 2004Q3

REPORT INFORMATION
  Report Type: 
  Country: None (occurrence: None)
  Receive Date: 20040928
  Receipt Date: 20040922
  Transmission Date: 20050211
  Serious: Yes (Hospitalization)
  Sender: FDA-Public Use
  Company Number: PHEH2004US10236

PATIENT
  Sex: Female

DRUGS (4)
  1. LAMISIL [Suspect]
     Dosage: 250 MG, QD
     Route: 048
  2. ANTI-PARKINSON AGENTS [Suspect]
     Indication: PARKINSON'S DISEASE
     Route: 048
  3. ANTIDEPRESSANTS [Concomitant]
  4. CHOLESTEROL- AND TRIGLYCERIDE REDUCERS [Concomitant]

REACTIONS (1)
  - DRUG INTERACTION [None]
